FAERS Safety Report 12927580 (Version 1)
Quarter: 2016Q4

REPORT INFORMATION
  Report Type: Spontaneous
  Country: US (occurrence: US)
  Receive Date: 20161109
  Receipt Date: 20161109
  Transmission Date: 20170207
  Serious: Yes (Hospitalization)
  Sender: FDA-Public Use
  Company Number: None

PATIENT
  Age: 20 Year
  Sex: Female
  Weight: 66.7 kg

DRUGS (3)
  1. SAFYRAL [Suspect]
     Active Substance: DROSPIRENONE\ETHINYL ESTRADIOL\LEVOMEFOLATE CALCIUM
     Indication: MENSTRUAL DISORDER
     Route: 048
  2. THERAGRAN [Concomitant]
     Active Substance: VITAMINS
  3. SAFYRAL [Suspect]
     Active Substance: DROSPIRENONE\ETHINYL ESTRADIOL\LEVOMEFOLATE CALCIUM
     Indication: ACNE
     Route: 048

REACTIONS (3)
  - Pulmonary embolism [None]
  - Dyspnoea [None]
  - Deep vein thrombosis [None]

NARRATIVE: CASE EVENT DATE: 20161107
